FAERS Safety Report 7585650-6 (Version None)
Quarter: 2011Q3

REPORT INFORMATION
  Report Type: 
  Country: None (occurrence: None)
  Receive Date: 20110701
  Receipt Date: 20110615
  Transmission Date: 20111222
  Serious: No
  Sender: FDA-Public Use
  Company Number: US-B.I. PHARMACEUTICALS,INC./RIDGEFIELD-2011-BP-15495BP

PATIENT
  Age: 80 Year
  Sex: Female

DRUGS (6)
  1. METOPROLOL TARTRATE [Concomitant]
     Indication: HYPERTENSION
     Dosage: 50 MG
     Dates: start: 20020101
  2. DIGOXIN [Concomitant]
     Indication: ATRIAL FIBRILLATION
     Dosage: 0.125 MG
     Dates: start: 20090101
  3. BUMEX [Concomitant]
     Indication: CARDIAC FAILURE CONGESTIVE
  4. PRADAXA [Suspect]
     Indication: ATRIAL FIBRILLATION
     Dosage: 300 MG
     Route: 048
     Dates: start: 20110101
  5. QUINAPRIL HCL [Concomitant]
     Indication: HYPERTENSION
     Dosage: 20 MG
     Dates: start: 20020101
  6. BUMEX [Concomitant]
     Indication: HYPERTENSION
     Dosage: 1 MG
     Dates: start: 20020101

REACTIONS (3)
  - DYSPEPSIA [None]
  - ARTHRALGIA [None]
  - HEADACHE [None]
